FAERS Safety Report 8281769-5 (Version None)
Quarter: 2012Q2

REPORT INFORMATION
  Report Type: 
  Country: None (occurrence: None)
  Receive Date: 20120413
  Receipt Date: 20120411
  Transmission Date: 20120825
  Serious: Yes (Death)
  Sender: FDA-Public Use
  Company Number: US-JNJFOC-20120405299

PATIENT

DRUGS (2)
  1. NUCYNTA ER [Suspect]
     Indication: PAIN
     Route: 065
  2. NUCYNTA [Suspect]
     Indication: PAIN
     Route: 065

REACTIONS (1)
  - OVERDOSE [None]
